FAERS Safety Report 9104341 (Version 4)
Quarter: 2013Q1

REPORT INFORMATION
  Report Type: Spontaneous
  Country: GB (occurrence: GB)
  Receive Date: 20130220
  Receipt Date: 20130328
  Transmission Date: 20140127
  Serious: Yes (Death, Hospitalization, Other)
  Sender: FDA-Public Use
  Company Number: PHFR2013GB001249

PATIENT
  Age: 71 Year
  Sex: Female

DRUGS (9)
  1. CLOZARIL [Suspect]
     Indication: SCHIZOPHRENIA
     Dosage: 12.5 MG
     Route: 048
     Dates: start: 20120803
  2. CLOZARIL [Suspect]
     Dosage: UNK UKN, UNK
     Dates: start: 20121102
  3. CLOZARIL [Suspect]
     Dosage: 25 MG PER DAY
     Route: 048
  4. CLOZARIL [Suspect]
     Dosage: 25 MG, BID HALF NOCTE
  5. DONEPEZIL [Concomitant]
     Indication: DEMENTIA
     Dosage: 5 MG, UNK
     Route: 048
  6. CO-BENELDOPA [Concomitant]
     Indication: PARKINSON^S DISEASE
     Dosage: 25MG/100MG
     Route: 048
     Dates: start: 20080513
  7. TRIMETHOPRIM [Concomitant]
     Indication: URINARY TRACT INFECTION
     Dosage: UNK UKN, BID
     Route: 048
     Dates: start: 20130207
  8. RIVASTIGMINE [Concomitant]
     Dosage: 3 MG, UNK
     Route: 048
     Dates: start: 20120105
  9. BIMATOPROST [Concomitant]
     Dosage: NOCTURNAL
     Route: 061
     Dates: start: 20120518

REACTIONS (12)
  - Large intestine perforation [Fatal]
  - Peritonitis [Fatal]
  - Parkinson^s disease [Fatal]
  - Large intestinal obstruction [Unknown]
  - Confusional state [Unknown]
  - Constipation [Unknown]
  - Urinary tract infection [Unknown]
  - Weight decreased [Unknown]
  - Urine output decreased [Unknown]
  - Abdominal pain upper [Unknown]
  - Neutrophil count increased [Unknown]
  - White blood cell count increased [Unknown]
